FAERS Safety Report 12967731 (Version 1)
Quarter: 2016Q4

REPORT INFORMATION
  Report Type: Spontaneous
  Country: US (occurrence: US)
  Receive Date: 20161123
  Receipt Date: 20161123
  Transmission Date: 20170207
  Serious: No
  Sender: FDA-Public Use
  Company Number: US-TEVA-647944USA

PATIENT
  Sex: Female

DRUGS (2)
  1. MUPIROCIN. [Suspect]
     Active Substance: MUPIROCIN
     Indication: EPISTAXIS
     Dates: end: 201603
  2. VASELINE PURE [Concomitant]
     Active Substance: PETROLATUM
     Route: 045

REACTIONS (2)
  - Epistaxis [Unknown]
  - Product use issue [Unknown]

NARRATIVE: CASE EVENT DATE: 20160328
